FAERS Safety Report 4507634-4 (Version None)
Quarter: 2004Q4

REPORT INFORMATION
  Report Type: 
  Country: None (occurrence: None)
  Receive Date: 20040928
  Receipt Date: 20040728
  Transmission Date: 20050328
  Serious: No
  Sender: FDA-Public Use
  Company Number: 04P-062-0268063-00

PATIENT
  Sex: Female
  Weight: 78.0187 kg

DRUGS (5)
  1. HUMIRA [Suspect]
     Indication: RHEUMATOID ARTHRITIS
     Dosage: 40 MG, 1 IN 2 WK, SUBCUTANEOUS
     Route: 058
     Dates: start: 20030101, end: 20040601
  2. PREDNISONE [Concomitant]
  3. MELOXICAM [Concomitant]
  4. ISOPHANE INSULIN [Concomitant]
  5. HUMALOG [Concomitant]

REACTIONS (3)
  - ANAL CANCER [None]
  - INJECTION SITE BURNING [None]
  - INJECTION SITE HAEMORRHAGE [None]
